FAERS Safety Report 5273833-X (Version None)
Quarter: 2007Q1

REPORT INFORMATION
  Report Type: 
  Country: None (occurrence: None)
  Receive Date: 20070323
  Receipt Date: 20070308
  Transmission Date: 20070707
  Serious: Yes (Death, Hospitalization)
  Sender: FDA-Public Use
  Company Number: DEWYE738421FEB07

PATIENT
  Sex: Male
  Weight: 95 kg

DRUGS (15)
  1. ENBREL [Suspect]
     Indication: RHEUMATOID ARTHRITIS
     Route: 058
     Dates: start: 20010801, end: 20020701
  2. ENBREL [Suspect]
     Route: 058
     Dates: start: 20021201, end: 20030301
  3. ENBREL [Suspect]
     Route: 058
     Dates: start: 20030501, end: 20040401
  4. ENBREL [Suspect]
     Route: 058
     Dates: start: 20040601, end: 20040901
  5. ENBREL [Suspect]
     Route: 058
     Dates: start: 20041201, end: 20050801
  6. ENBREL [Suspect]
     Route: 058
     Dates: start: 20051001, end: 20061201
  7. DECORTIN-H [Concomitant]
     Indication: RHEUMATOID ARTHRITIS
     Route: 048
     Dates: start: 19970101, end: 20070110
  8. CELEBREX [Concomitant]
     Indication: RHEUMATOID ARTHRITIS
     Route: 048
     Dates: start: 20030101, end: 20070110
  9. GEMCITABINE [Concomitant]
     Indication: HEPATIC NEOPLASM MALIGNANT
     Dosage: UNKNOWN
     Dates: start: 20061201, end: 20070101
  10. VASCAL [Concomitant]
     Indication: HYPERTENSION
     Route: 048
     Dates: start: 20010701, end: 20070110
  11. RITUXIMAB [Concomitant]
     Indication: RHEUMATOID ARTHRITIS
     Dosage: UNKNOWN
     Dates: start: 20070101
  12. OMEPRAZOLE [Concomitant]
     Dosage: UNKNOWN
     Dates: end: 20070101
  13. XELODA [Concomitant]
     Indication: HEPATIC NEOPLASM MALIGNANT
     Dosage: UNKNOWN
     Dates: start: 20061201, end: 20070101
  14. QUENSYL [Concomitant]
     Indication: RHEUMATOID ARTHRITIS
     Route: 048
     Dates: start: 19970701, end: 20070110
  15. PROTAPHANE MC [Concomitant]
     Indication: DIABETES MELLITUS
     Dosage: 14 IU PER DAY
     Route: 058
     Dates: start: 20041101, end: 20070110

REACTIONS (2)
  - HEPATIC FAILURE [None]
  - MIXED HEPATOCELLULAR CHOLANGIOCARCINOMA [None]
